FAERS Safety Report 9214083 (Version 1)
Quarter: 2013Q2

REPORT INFORMATION
  Report Type: Spontaneous
  Country: US (occurrence: None)
  Receive Date: 20130404
  Receipt Date: 20130404
  Transmission Date: 20140414
  Serious: Yes (Hospitalization, Other)
  Sender: FDA-Public Use
  Company Number: None

PATIENT
  Age: 83 Year
  Sex: Female

DRUGS (1)
  1. LETROZOLE [Suspect]
     Dosage: 2.5MG DAILY ORAL
     Route: 048
     Dates: start: 201205

REACTIONS (3)
  - Fall [None]
  - Head injury [None]
  - Cerebrovascular accident [None]
